FAERS Safety Report 18073757 (Version 2)
Quarter: 2022Q1

REPORT INFORMATION
  Report Type: Spontaneous
  Country: CA (occurrence: CA)
  Receive Date: 20200727
  Receipt Date: 20220222
  Transmission Date: 20220424
  Serious: Yes (Death, Hospitalization, Other)
  Sender: FDA-Public Use
  Company Number: CA-ALLERGAN-2027614US

PATIENT
  Sex: Female
  Weight: 51 kg

DRUGS (16)
  1. FOSFOMYCIN TROMETHAMINE [Suspect]
     Active Substance: FOSFOMYCIN TROMETHAMINE
     Indication: Urinary tract infection
     Dosage: 3 G, SINGLE
     Route: 048
     Dates: start: 2019, end: 2019
  2. BISOPROLOL [Concomitant]
     Active Substance: BISOPROLOL
  3. DICLOFENAC [Concomitant]
     Active Substance: DICLOFENAC
  4. DORZOLAMIDE [Concomitant]
     Active Substance: DORZOLAMIDE
     Route: 047
  5. ELIQUIS [Concomitant]
     Active Substance: APIXABAN
  6. FLOVENT [Concomitant]
     Active Substance: FLUTICASONE PROPIONATE
  7. IMODIUM [Concomitant]
     Active Substance: LOPERAMIDE HYDROCHLORIDE
  8. LATANOPROST [Concomitant]
     Active Substance: LATANOPROST
     Route: 047
  9. LYRICA [Concomitant]
     Active Substance: PREGABALIN
  10. NORVASC [Concomitant]
     Active Substance: AMLODIPINE BESYLATE
  11. PLAVIX [Concomitant]
     Active Substance: CLOPIDOGREL BISULFATE
  12. SERAX                              /00040901/ [Concomitant]
  13. SYNTHROID [Concomitant]
     Active Substance: LEVOTHYROXINE SODIUM
  14. TYLENOL                            /00020001/ [Concomitant]
  15. ULTRADOL                           /00599202/ [Concomitant]
  16. VENTOLIN [Concomitant]
     Active Substance: ALBUTEROL SULFATE

REACTIONS (8)
  - Pyrexia [Fatal]
  - Arthralgia [Fatal]
  - Oral pain [Fatal]
  - Rash papular [Fatal]
  - Erythema [Fatal]
  - Condition aggravated [Fatal]
  - Chapped lips [Fatal]
  - Pruritus [Fatal]
